FAERS Safety Report 11788552 (Version 3)
Quarter: 2016Q3

REPORT INFORMATION
  Report Type: Spontaneous
  Country: GB (occurrence: GB)
  Receive Date: 20151201
  Receipt Date: 20160714
  Transmission Date: 20161109
  Serious: Yes (Other)
  Sender: FDA-Public Use
  Company Number: GB-AMGEN-GBRSP2015125497

PATIENT
  Age: 35 Year
  Sex: Female

DRUGS (9)
  1. RANITIDINE. [Concomitant]
     Active Substance: RANITIDINE
  2. CALCICHEW [Concomitant]
     Active Substance: CALCIUM CARBONATE
  3. PREDNISOLONE. [Concomitant]
     Active Substance: PREDNISOLONE
     Dosage: 10 MG, QD
  4. SODIUM BICARBONATE. [Concomitant]
     Active Substance: SODIUM BICARBONATE
  5. ALFACALCIDOL [Concomitant]
     Active Substance: ALFACALCIDOL
  6. EPOGEN [Suspect]
     Active Substance: ERYTHROPOIETIN
     Indication: PRODUCT USED FOR UNKNOWN INDICATION
     Route: 065
  7. MYCOPHENOLATE MOFETIL. [Concomitant]
     Active Substance: MYCOPHENOLATE MOFETIL
     Dosage: 1 G, BID
  8. ARANESP [Suspect]
     Active Substance: DARBEPOETIN ALFA
     Indication: ANAEMIA
     Dosage: 130 MUG, EVERY FIVE DAYS
     Route: 065
     Dates: start: 2009
  9. RAMIPRIL. [Concomitant]
     Active Substance: RAMIPRIL

REACTIONS (4)
  - Feeling abnormal [Not Recovered/Not Resolved]
  - Therapeutic response decreased [Unknown]
  - Reticulocyte count decreased [Not Recovered/Not Resolved]
  - Anaemia [Not Recovered/Not Resolved]
